FAERS Safety Report 7731364-9 (Version None)
Quarter: 2011Q3

REPORT INFORMATION
  Report Type: 
  Country: None (occurrence: None)
  Receive Date: 20110906
  Receipt Date: 20110712
  Transmission Date: 20111222
  Serious: No
  Sender: FDA-Public Use
  Company Number: US-AMGEN-USASP2011029841

PATIENT
  Age: 74 Year
  Sex: Female

DRUGS (20)
  1. PROLIA [Suspect]
     Indication: OSTEOPENIA
     Dosage: 60 MG, Q6MO
     Dates: start: 20110524
  2. LEVOTHYROXINE SODIUM [Concomitant]
     Dosage: UNK UNK, QD
     Route: 048
  3. ACTONEL [Concomitant]
     Dosage: UNK UNK, QWK
     Route: 048
  4. CALCIUM CARBONATE [Concomitant]
     Dosage: UNK UNK, QD
  5. ASPIRIN LOW [Concomitant]
     Dosage: UNK UNK, QOD
  6. FISH OIL [Concomitant]
     Dosage: UNK UNK, QD
     Route: 048
  7. CHELATED ZINC                      /00156501/ [Concomitant]
     Dosage: UNK UNK, QOD
  8. FLAXSEED OIL [Concomitant]
     Dosage: UNK UNK, BID
  9. FLEXERIL [Concomitant]
  10. ACETAMINOPHEN AND HYDROCODONE BITARTRATE [Concomitant]
     Dosage: UNK UNK, PRN
  11. MULTIVITAMIN                       /00097801/ [Concomitant]
     Dosage: UNK UNK, QD
     Route: 048
  12. PROLIA [Suspect]
     Indication: BACK PAIN
  13. VITAMIN C                          /00008001/ [Concomitant]
     Dosage: UNK UNK, QD
  14. VITAMIN E                          /00110501/ [Concomitant]
     Dosage: 400 IU, UNK
  15. BETACAROTENE [Concomitant]
     Dosage: UNK UNK, QD
     Route: 048
  16. LIPITOR [Concomitant]
     Dosage: UNK UNK, QD
     Route: 048
  17. TRAVATAN Z [Concomitant]
  18. AZOPT [Concomitant]
     Route: 047
  19. IBUPROFEN [Concomitant]
     Dosage: UNK UNK, TID
  20. CALCIUM MAGNESIUM [Concomitant]
     Dosage: UNK

REACTIONS (1)
  - ARTHRALGIA [None]
